FAERS Safety Report 5343848-1 (Version None)
Quarter: 2007Q2

REPORT INFORMATION
  Report Type: 
  Country: None (occurrence: None)
  Receive Date: 20070531
  Receipt Date: 20070521
  Transmission Date: 20071010
  Serious: Yes (Hospitalization)
  Sender: FDA-Public Use
  Company Number: 2007-02484

PATIENT
  Age: 81 Year
  Sex: Female

DRUGS (2)
  1. FERRLECIT [Suspect]
     Indication: IRON DEFICIENCY ANAEMIA
     Dosage: 125 MG, SINGLE; INTRAVENOUS
     Route: 042
     Dates: start: 20070517, end: 20070517
  2. ACNE INHIBITOR NOS [Suspect]
     Indication: HYPERTENSION

REACTIONS (4)
  - HYPERKALAEMIA [None]
  - MUSCLE INJURY [None]
  - MUSCULAR WEAKNESS [None]
  - MYOGLOBIN BLOOD INCREASED [None]
